FAERS Safety Report 4869291-7 (Version None)
Quarter: 2005Q4

REPORT INFORMATION
  Report Type: 
  Country: None (occurrence: None)
  Receive Date: 20051230
  Receipt Date: 20051220
  Transmission Date: 20060501
  Serious: Yes (Hospitalization)
  Sender: FDA-Public Use
  Company Number: FR-BRISTOL-MYERS SQUIBB COMPANY-13225370

PATIENT
  Age: 55 Year
  Sex: Female

DRUGS (9)
  1. ELISOR [Suspect]
     Route: 048
     Dates: end: 20050921
  2. LEXOMIL [Suspect]
     Dates: end: 20050921
  3. TRIMETAZIDINE [Suspect]
     Dates: end: 20050921
  4. EQUANIL [Suspect]
     Dates: end: 20050921
  5. DAFLON [Suspect]
     Dates: end: 20050921
  6. HAWTHORN [Suspect]
     Dates: end: 20050921
  7. SPASFON [Concomitant]
  8. AMLOR [Concomitant]
  9. TIAPRIDAL [Concomitant]

REACTIONS (1)
  - HYPONATRAEMIA [None]
